FAERS Safety Report 10251213 (Version 2)
Quarter: 2014Q2

REPORT INFORMATION
  Report Type: Report from Study
  Country: US (occurrence: US)
  Receive Date: 20140620
  Receipt Date: 20140620
  Transmission Date: 20141212
  Serious: Yes (Hospitalization)
  Sender: FDA-Public Use
  Company Number: US-ASTRAZENECA-2014SE18206

PATIENT
  Age: 69 Year
  Sex: Female
  Weight: 88.5 kg

DRUGS (31)
  1. LISINOPRIL [Suspect]
     Indication: HYPERTENSION
     Route: 048
  2. CRESTOR [Suspect]
     Indication: HYPERLIPIDAEMIA
     Dosage: 5MG TABLET CUT IN HALF, DAILY
     Route: 048
     Dates: start: 20131203, end: 201403
  3. CRESTOR [Suspect]
     Indication: BLOOD CHOLESTEROL ABNORMAL
     Dosage: 5MG TABLET CUT IN HALF, DAILY
     Route: 048
     Dates: start: 20131203, end: 201403
  4. LANTUS [Concomitant]
     Indication: DIABETES MELLITUS
     Dosage: 30 UNITS DAILY BEFORE BREAKFAST
     Route: 058
  5. METFORMIN [Concomitant]
     Dosage: 1000 MG TWICE DAILY WITH MEALS
     Route: 048
  6. CARVEDILOL [Concomitant]
     Dosage: NR NR
     Route: 048
  7. CARVEDILOL [Concomitant]
  8. TRICOR [Concomitant]
     Indication: BLOOD TRIGLYCERIDES ABNORMAL
     Route: 048
  9. VIT D3 [Concomitant]
     Dosage: 2000 UNIT TAB, 1 TABLET DAILY
     Route: 048
  10. ASPIRIN [Concomitant]
     Route: 048
  11. ASPIRIN [Concomitant]
     Route: 048
  12. PROTONIX [Concomitant]
     Indication: GASTROOESOPHAGEAL REFLUX DISEASE
     Route: 048
  13. AMLODIPINE [Concomitant]
     Route: 048
  14. FUROSEMIDE [Concomitant]
     Route: 048
  15. LEVOTHYROXINE [Concomitant]
     Dosage: 112MCG DAILY BEFORE BREAKFAST
     Route: 048
  16. HYDRALAZINE [Concomitant]
     Indication: BLOOD PRESSURE ABNORMAL
     Route: 048
  17. HYDRALAZINE [Concomitant]
     Indication: BLOOD PRESSURE ABNORMAL
     Dosage: 25 MG QPM AND AT BEDTIME
  18. MAGNESIUM [Concomitant]
     Indication: BLOOD MAGNESIUM DECREASED
     Route: 048
     Dates: start: 201311
  19. PRENATAL VITAMINS [Concomitant]
  20. PRAVASTATIN [Concomitant]
     Dates: start: 201311
  21. NORVASC [Concomitant]
     Dates: start: 201311
  22. LASIX [Concomitant]
     Dates: start: 201311
  23. MAG OXIDE [Concomitant]
     Dosage: 400 MG TWO TIMES A DAY OVER THE COUNTER
     Dates: start: 201311
  24. SALINE NASAL SPRAY [Concomitant]
     Dosage: 2 SPRAY TWICE AS NEEDED
     Route: 045
  25. NITROGLYCERIN [Concomitant]
     Indication: CHEST PAIN
     Route: 060
  26. NITROGLYCERIN [Concomitant]
     Indication: CHEST PAIN
     Dosage: 0.4 MG UNDER TONGUE EVERY 5 MIN AS NEEDED FOR CHESTPAIN (MAX:3 DOSES PER EPISODE)
     Route: 060
  27. ZANTAC [Concomitant]
  28. XANAX [Concomitant]
     Indication: ANXIETY
     Dosage: 0.25 MG TO 0.5 MG THREE TIMES A DAY AS NEEDED
  29. VITAMIN D [Concomitant]
     Dosage: 2000 UNITS DAILY
  30. HYDROCHLOROTHIAZIDE [Concomitant]
  31. HYDROCHLOROTHIAZIDE [Concomitant]

REACTIONS (31)
  - Hypertension [Unknown]
  - Hypertension [Unknown]
  - Gastrooesophageal reflux disease [Unknown]
  - Blood magnesium decreased [Unknown]
  - Dyspnoea [Unknown]
  - Hypothyroidism [Unknown]
  - Cataract [Unknown]
  - Cardiac failure congestive [Unknown]
  - Hyperlipidaemia [Unknown]
  - Dyslipidaemia [Unknown]
  - Chest discomfort [Unknown]
  - Obesity [Unknown]
  - Coronary artery disease [Unknown]
  - Type 2 diabetes mellitus [Unknown]
  - Dyspnoea exertional [Unknown]
  - Arthralgia [Unknown]
  - Peripheral swelling [Unknown]
  - Weight decreased [Unknown]
  - Weight fluctuation [Not Recovered/Not Resolved]
  - Left ventricular hypertrophy [Unknown]
  - Pollakiuria [Unknown]
  - Fluid retention [Unknown]
  - Weight increased [Unknown]
  - Onychomycosis [Unknown]
  - Anxiety [Unknown]
  - Wheezing [Unknown]
  - Oral herpes [Unknown]
  - Erythema [Unknown]
  - Drug dose omission [Not Recovered/Not Resolved]
  - Intentional product misuse [Unknown]
  - Drug ineffective [Unknown]
